FAERS Safety Report 21438429 (Version 2)
Quarter: 2023Q4

REPORT INFORMATION
  Report Type: Report from Study
  Country: US (occurrence: US)
  Receive Date: 20221011
  Receipt Date: 20231116
  Transmission Date: 20240110
  Serious: Yes (Life-Threatening, Hospitalization, Other)
  Sender: FDA-Public Use
  Company Number: US-BRISTOL-MYERS SQUIBB COMPANY-2022-116914

PATIENT
  Age: 87 Year
  Sex: Male
  Weight: 73 kg

DRUGS (2)
  1. ELIQUIS [Suspect]
     Active Substance: APIXABAN
     Indication: Atrial fibrillation
     Route: 048
     Dates: start: 202204
  2. ELIQUIS [Suspect]
     Active Substance: APIXABAN

REACTIONS (8)
  - Blood urine present [Unknown]
  - Pneumonia [Unknown]
  - Cardiac disorder [Unknown]
  - Cerebral haemorrhage [Unknown]
  - Fall [Unknown]
  - Head injury [Unknown]
  - Contusion [Unknown]
  - Prostate cancer [Unknown]

NARRATIVE: CASE EVENT DATE: 20220407
